FAERS Safety Report 5243517-2 (Version None)
Quarter: 2007Q1

REPORT INFORMATION
  Report Type: 
  Country: None (occurrence: None)
  Receive Date: 20070222
  Receipt Date: 20070208
  Transmission Date: 20070707
  Serious: Yes (Other)
  Sender: FDA-Public Use
  Company Number: PHNU2006DE02808

PATIENT
  Age: 71 Year
  Sex: Female

DRUGS (1)
  1. CIBACEN [Suspect]
     Indication: HYPERTENSION
     Dosage: 5 MG, QD
     Dates: start: 20050506, end: 20060701

REACTIONS (8)
  - BRONCHITIS [None]
  - CATARACT [None]
  - CATARACT OPERATION [None]
  - COUGH [None]
  - PRODUCTIVE COUGH [None]
  - RETINAL DISORDER [None]
  - RETINAL OPERATION [None]
  - SYNCOPE [None]
